FAERS Safety Report 8259290-X (Version None)
Quarter: 2012Q2

REPORT INFORMATION
  Report Type: 
  Country: None (occurrence: None)
  Receive Date: 20120404
  Receipt Date: 20120330
  Transmission Date: 20120825
  Serious: Yes (Hospitalization)
  Sender: FDA-Public Use
  Company Number: US-PFIZER INC-2012082733

PATIENT
  Sex: Male

DRUGS (6)
  1. CHANTIX [Suspect]
     Dosage: 1 MG, 2X/DAY
     Route: 048
  2. INSULIN DETEMIR [Concomitant]
     Dosage: UNK
  3. CHANTIX [Suspect]
     Dosage: 0.5 MG, AS DIRECTED
  4. WELLBUTRIN [Concomitant]
     Dosage: UNK
  5. PROZAC [Concomitant]
     Dosage: UNK
  6. CELEBREX [Suspect]
     Dosage: 200 MG (1 TAB), QD RFX3

REACTIONS (2)
  - DIABETES MELLITUS [None]
  - ACTIVITIES OF DAILY LIVING IMPAIRED [None]
